FAERS Safety Report 5804214-5 (Version None)
Quarter: 2008Q3

REPORT INFORMATION
  Report Type: 
  Country: None (occurrence: None)
  Receive Date: 20080709
  Receipt Date: 20080701
  Transmission Date: 20090109
  Serious: Yes (Hospitalization, Other)
  Sender: FDA-Public Use
  Company Number: US-AMGEN-QUU288854

PATIENT
  Sex: Female

DRUGS (17)
  1. ENBREL [Suspect]
     Indication: PSORIASIS
     Route: 058
     Dates: start: 20050106
  2. ENBREL [Suspect]
     Indication: PSORIATIC ARTHROPATHY
  3. PREMARIN [Concomitant]
  4. AMBIEN [Concomitant]
  5. METOPROLOL SUCCINATE [Concomitant]
  6. CELEBREX [Concomitant]
  7. PROPOXYPHENE [Concomitant]
  8. CEPHALEXIN [Concomitant]
  9. ALBUTEROL [Concomitant]
  10. FLONASE [Concomitant]
  11. QUININE SULFATE [Concomitant]
  12. DESONIDE [Concomitant]
  13. DESOXIMETASONE [Concomitant]
  14. TRIAMCINOLONE [Concomitant]
  15. UNSPECIFIED TOPICAL PRODUCT [Concomitant]
     Route: 061
  16. OLUX [Concomitant]
     Route: 061
  17. TEMOVATE [Concomitant]

REACTIONS (12)
  - ALOPECIA [None]
  - BREAST CYST [None]
  - HEPATIC CYST [None]
  - INJECTION SITE ERYTHEMA [None]
  - KNEE OPERATION [None]
  - LIPOMA [None]
  - MELANOCYTIC NAEVUS [None]
  - PSORIASIS [None]
  - SEBACEOUS ADENOMA [None]
  - SEBACEOUS HYPERPLASIA [None]
  - TYPE 1 DIABETES MELLITUS [None]
  - VOLVULUS [None]
